FAERS Safety Report 4299891-7 (Version None)
Quarter: 2004Q1

REPORT INFORMATION
  Report Type: 
  Country: None (occurrence: None)
  Receive Date: 20040219
  Receipt Date: 20040219
  Transmission Date: 20041129
  Serious: Yes (Hospitalization)
  Sender: FDA-Public Use
  Company Number: None

PATIENT
  Age: 84 Year
  Sex: Male
  Weight: 86.1834 kg

DRUGS (8)
  1. WARFARIN 2 MG, 3 MG [Suspect]
     Indication: ATRIAL FIBRILLATION
     Dosage: 1 PO QD
     Route: 048
  2. AZITHROMAX 250 MG [Suspect]
     Indication: UPPER RESPIRATORY TRACT INFECTION
     Dosage: 2X1 D 1X4D
  3. CODEINE [Concomitant]
  4. COLCHICINE [Concomitant]
  5. DIGOXIN [Concomitant]
  6. FELODIPINE [Concomitant]
  7. HYDROCHLOROTHIAZIDE [Concomitant]
  8. MINOXIDIL [Concomitant]

REACTIONS (5)
  - COUGH [None]
  - HAEMATOCRIT DECREASED [None]
  - HAEMOGLOBIN DECREASED [None]
  - INTERNATIONAL NORMALISED RATIO INCREASED [None]
  - OEDEMA PERIPHERAL [None]
